FAERS Safety Report 21799434 (Version 2)
Quarter: 2023Q1

REPORT INFORMATION
  Report Type: Spontaneous
  Country: US (occurrence: None)
  Receive Date: 20221230
  Receipt Date: 20230111
  Transmission Date: 20230418
  Serious: No
  Sender: FDA-Public Use
  Company Number: 2022A405358

PATIENT
  Age: 65 Year
  Sex: Female
  Weight: 81.2 kg

DRUGS (5)
  1. BYDUREON BCISE [Suspect]
     Active Substance: EXENATIDE
     Indication: Diabetes mellitus
     Route: 058
     Dates: start: 2022
  2. OZEMPIC [Concomitant]
     Active Substance: SEMAGLUTIDE
  3. VICTOZA [Concomitant]
     Active Substance: LIRAGLUTIDE
  4. JARDIANCE [Concomitant]
     Active Substance: EMPAGLIFLOZIN
  5. METFORMIN [Concomitant]
     Active Substance: METFORMIN HYDROCHLORIDE

REACTIONS (7)
  - Injection site cyst [Unknown]
  - Uterine leiomyoma [Unknown]
  - Injection site pruritus [Unknown]
  - Injection site haemorrhage [Unknown]
  - Injection site pain [Unknown]
  - Injection site erythema [Unknown]
  - Injection site nodule [Recovered/Resolved]

NARRATIVE: CASE EVENT DATE: 20220101
